FAERS Safety Report 6187958-8 (Version None)
Quarter: 2009Q2

REPORT INFORMATION
  Report Type: 
  Country: None (occurrence: None)
  Receive Date: 20090513
  Receipt Date: 20090505
  Transmission Date: 20091009
  Serious: Yes (Other)
  Sender: FDA-Public Use
  Company Number: US-ROCHE-621859

PATIENT
  Sex: Male

DRUGS (5)
  1. PEG-INTERFERON ALFA 2A (RO 25-8310) [Suspect]
     Route: 058
     Dates: start: 20080908, end: 20090218
  2. RIBAVIRIN [Suspect]
     Route: 048
     Dates: start: 20080908
  3. ELTROMBOPAG [Suspect]
     Indication: THROMBOCYTOPENIA
     Route: 048
     Dates: start: 20080815, end: 20080829
  4. ELTROMBOPAG [Suspect]
     Route: 048
     Dates: start: 20080830, end: 20080908
  5. BLINDED ELTROMBOPAG [Suspect]
     Indication: THROMBOCYTOPENIA
     Dosage: DOSE BLINDED
     Route: 048
     Dates: start: 20080909

REACTIONS (1)
  - CATARACT [None]
